FAERS Safety Report 19203726 (Version 1)
Quarter: 2021Q2

REPORT INFORMATION
  Report Type: Spontaneous
  Country: US (occurrence: US)
  Receive Date: 20210503
  Receipt Date: 20210503
  Transmission Date: 20210717
  Serious: Yes (Other)
  Sender: FDA-Public Use
  Company Number: US-LUPIN PHARMACEUTICALS INC.-2021-05695

PATIENT
  Age: 79 Year
  Sex: Male

DRUGS (2)
  1. HYDROXYCHLOROQUINE [Suspect]
     Active Substance: HYDROXYCHLOROQUINE
     Indication: COVID-19
     Dosage: UNK
     Route: 065
  2. LERONLIMAB. [Concomitant]
     Active Substance: LERONLIMAB
     Indication: COVID-19
     Dosage: FIRST INJECTION FOLLOWING BASELINE BLOOD COLLECTION. SUBSEQUENTLY, A SECOND INJECTION OF 700 MG LERO
     Route: 058

REACTIONS (1)
  - Off label use [Unknown]
